FAERS Safety Report 8969590 (Version 1)
Quarter: 2012Q4

REPORT INFORMATION
  Report Type: 
  Country: US (occurrence: US)
  Receive Date: 20121218
  Receipt Date: 20121218
  Transmission Date: 20130627
  Serious: No
  Sender: FDA-Public Use
  Company Number: US-BRISTOL-MYERS SQUIBB COMPANY-16614141

PATIENT
  Age: 45 Year
  Sex: Male

DRUGS (3)
  1. ABILIFY [Suspect]
     Dosage: Initially given 5mg then increased to 10mg
  2. LEXAPRO [Suspect]
  3. KLONOPIN [Suspect]
     Dosage: 1mg in PM

REACTIONS (1)
  - Dysarthria [Unknown]
